FAERS Safety Report 25854264 (Version 1)
Quarter: 2025Q3

REPORT INFORMATION
  Report Type: Spontaneous
  Country: US (occurrence: US)
  Receive Date: 20250926
  Receipt Date: 20250926
  Transmission Date: 20251020
  Serious: Yes (Other)
  Sender: ARDELYX
  Company Number: US-ARDELYX-2025ARDX007191

PATIENT

DRUGS (1)
  1. XPHOZAH [Suspect]
     Active Substance: TENAPANOR HYDROCHLORIDE
     Indication: Product used for unknown indication
     Route: 065
     Dates: start: 202507, end: 20250808

REACTIONS (4)
  - Syncope [Unknown]
  - Weight decreased [Unknown]
  - Blood pressure decreased [Unknown]
  - Diarrhoea [Unknown]

NARRATIVE: CASE EVENT DATE: 20250101
